FAERS Safety Report 9604348 (Version 1)
Quarter: 2013Q4

REPORT INFORMATION
  Report Type: Other
  Country: FR (occurrence: FR)
  Receive Date: 20131008
  Receipt Date: 20131008
  Transmission Date: 20140711
  Serious: Yes (Life-Threatening, Hospitalization)
  Sender: FDA-Public Use
  Company Number: FR-MPIJNJ-2013JNJ000429

PATIENT
  Sex: 0

DRUGS (11)
  1. VELCADE [Suspect]
     Indication: PLASMA CELL MYELOMA
     Dosage: UNK
     Route: 058
     Dates: start: 201104, end: 201204
  2. VELCADE [Suspect]
     Dosage: UNK
     Route: 058
     Dates: start: 201208
  3. VELCADE [Suspect]
     Dosage: UNK
     Dates: start: 201309
  4. DEXAMETHASONE [Suspect]
     Indication: PLASMA CELL MYELOMA
     Dosage: UNK
     Route: 065
     Dates: start: 2009, end: 201204
  5. DEXAMETHASONE [Suspect]
     Dosage: UNK
     Route: 065
     Dates: start: 201208, end: 201301
  6. REVLIMID [Suspect]
     Indication: PLASMA CELL MYELOMA
     Dosage: 10 MG, UNK
     Route: 048
     Dates: start: 2009, end: 201104
  7. REVLIMID [Suspect]
     Dosage: UNK
  8. MELPHALAN [Suspect]
     Indication: PLASMA CELL MYELOMA
     Dosage: UNK
     Route: 065
     Dates: start: 2004, end: 2009
  9. MELPHALAN [Suspect]
     Dosage: UNK
     Route: 065
     Dates: start: 201309
  10. PREDNISONE [Suspect]
     Indication: PLASMA CELL MYELOMA
     Dosage: UNK
     Route: 065
     Dates: start: 2004, end: 2009
  11. PREDNISONE [Suspect]
     Dosage: UNK
     Route: 065
     Dates: start: 201309

REACTIONS (1)
  - Adenocarcinoma of colon [Unknown]
